FAERS Safety Report 8203872-8 (Version None)
Quarter: 2012Q1

REPORT INFORMATION
  Report Type: 
  Country: None (occurrence: None)
  Receive Date: 20120308
  Receipt Date: 20120228
  Transmission Date: 20120608
  Serious: Yes (Hospitalization)
  Sender: FDA-Public Use
  Company Number: 2012SP011249

PATIENT
  Age: 31 Year
  Sex: Female

DRUGS (3)
  1. CETROTIDE [Suspect]
     Indication: PRODUCT USED FOR UNKNOWN INDICATION
     Dosage: SC
     Route: 058
     Dates: start: 20111020, end: 20111026
  2. PUREGON (FOLLITROPIN BETA /01348901/) [Suspect]
     Indication: PRODUCT USED FOR UNKNOWN INDICATION
     Dosage: SC
     Route: 058
     Dates: start: 20111019, end: 20111025
  3. CHORIONIC GONADOTROPIN [Suspect]
     Indication: PRODUCT USED FOR UNKNOWN INDICATION
     Dosage: 5000 IU;ONCE;IM
     Route: 030
     Dates: start: 20111026, end: 20111026

REACTIONS (3)
  - HYPONATRAEMIA [None]
  - OVARIAN HYPERSTIMULATION SYNDROME [None]
  - ASCITES [None]
